FAERS Safety Report 24184964 (Version 2)
Quarter: 2024Q3

REPORT INFORMATION
  Report Type: Report from Study
  Country: GB (occurrence: GB)
  Receive Date: 20240807
  Receipt Date: 20240916
  Transmission Date: 20241016
  Serious: Yes (Hospitalization)
  Sender: MYLAN
  Company Number: GB-Accord-438737

PATIENT
  Age: 81 Year
  Sex: Male

DRUGS (16)
  1. EPLERENONE [Suspect]
     Active Substance: EPLERENONE
     Indication: Cardiac failure
     Dosage: UNK
     Route: 065
  2. EPLERENONE [Suspect]
     Active Substance: EPLERENONE
     Indication: Cardiac amyloidosis
     Dosage: 12.5 MILLIGRAM, QD (AT NIGHT)
     Route: 065
     Dates: start: 202310
  3. EPLERENONE [Suspect]
     Active Substance: EPLERENONE
     Dosage: 12.5 MILLIGRAM, QD
     Route: 048
     Dates: start: 202310, end: 20240813
  4. EPLERENONE [Suspect]
     Active Substance: EPLERENONE
     Indication: Cardiac amyloidosis
     Dosage: 25 MILLIGRAM, QD
     Route: 048
     Dates: start: 202211, end: 202310
  5. FUROSEMIDE [Suspect]
     Active Substance: FUROSEMIDE
     Indication: Cardiac amyloidosis
     Dosage: UNK
     Route: 065
  6. FUROSEMIDE [Suspect]
     Active Substance: FUROSEMIDE
     Dosage: 40 MILLIGRAM, QD
     Route: 048
     Dates: start: 20211020, end: 202310
  7. EMPAGLIFLOZIN [Suspect]
     Active Substance: EMPAGLIFLOZIN
     Indication: Product used for unknown indication
     Dosage: UNK
     Route: 065
  8. QUININE SULFATE [Concomitant]
     Active Substance: QUININE SULFATE
     Indication: Muscle spasms
     Dosage: 200 MILLIGRAM, QD (ONCE DAILY)
     Route: 048
     Dates: start: 202306
  9. COLCHICINE [Concomitant]
     Active Substance: COLCHICINE
     Indication: Gout
     Dosage: 500 MICROGRAM, PRN (AS NEEDED)
     Route: 048
     Dates: start: 201508
  10. RIVAROXABAN [Concomitant]
     Active Substance: RIVAROXABAN
     Indication: Atrial fibrillation
     Dosage: 20 MILLIGRAM, QD
     Route: 048
     Dates: start: 201906
  11. ALLOPURINOL [Concomitant]
     Active Substance: ALLOPURINOL
     Indication: Gout
     Dosage: 100 MILLIGRAM, QD
     Route: 048
     Dates: start: 20210509
  12. FUROSEMIDE [Concomitant]
     Active Substance: FUROSEMIDE
     Indication: Cardiac amyloidosis
     Dosage: 40 MILLIGRAM, QD
     Route: 048
     Dates: start: 20211020, end: 20231018
  13. EPLERENONE [Concomitant]
     Active Substance: EPLERENONE
     Indication: Cardiac amyloidosis
     Dosage: 25 MILLIGRAM, QD
     Route: 048
     Dates: start: 202211
  14. OXYMETAZOLINE [Concomitant]
     Active Substance: OXYMETAZOLINE
     Indication: Sinus congestion
     Dosage: UNK, PRN (1 SPRAY PRN VIA NASAL ROUTE)
     Route: 045
     Dates: start: 20200729
  15. EMPAGLIFLOZIN [Concomitant]
     Active Substance: EMPAGLIFLOZIN
     Indication: Product used for unknown indication
     Dosage: 10 MILLIGRAM, QD
     Route: 048
  16. ACORAMIDIS [Concomitant]
     Active Substance: ACORAMIDIS
     Dosage: UNK
     Route: 065
     Dates: start: 20230213, end: 20230925

REACTIONS (2)
  - Orthostatic hypotension [Recovered/Resolved with Sequelae]
  - Wrong technique in product usage process [Unknown]

NARRATIVE: CASE EVENT DATE: 20230926
